FAERS Safety Report 6338762-9 (Version None)
Quarter: 2009Q3

REPORT INFORMATION
  Report Type: 
  Country: None (occurrence: None)
  Receive Date: 20090903
  Receipt Date: 20090423
  Transmission Date: 20100115
  Serious: Yes (Other)
  Sender: FDA-Public Use
  Company Number: DE-JNJFOC-20090405665

PATIENT
  Sex: Female
  Weight: 90.7 kg

DRUGS (4)
  1. CONCERTA [Suspect]
     Route: 048
  2. CONCERTA [Suspect]
     Route: 048
  3. CONCERTA [Suspect]
     Indication: DRUG USE FOR UNKNOWN INDICATION
     Route: 048
  4. MEDIKINET [Concomitant]
     Route: 065

REACTIONS (3)
  - ARRHYTHMIA [None]
  - HYPERTENSION [None]
  - TACHYCARDIA [None]
